FAERS Safety Report 7687146-X (Version None)
Quarter: 2011Q3

REPORT INFORMATION
  Report Type: 
  Country: None (occurrence: None)
  Receive Date: 20110816
  Receipt Date: 20110808
  Transmission Date: 20111222
  Serious: Yes (Other)
  Sender: FDA-Public Use
  Company Number: PHHY2011BR71199

PATIENT
  Sex: Female

DRUGS (6)
  1. ZOLEDRONOC ACID [Suspect]
     Dosage: 5 MG/100ML
     Route: 042
     Dates: start: 20100501
  2. ZOLEDRONOC ACID [Suspect]
     Indication: OSTEOPOROTIC FRACTURE
     Dosage: 5 MG/100ML ANUALLY
     Route: 042
     Dates: start: 20070801
  3. NIMESULIDE [Concomitant]
     Dosage: 120 MG, QD
  4. CHLOROQUINE DIPHOSPHATE [Concomitant]
     Dosage: 180 MG, QD
  5. METHOTREXATE [Concomitant]
     Dosage: 7.5 MG,MG/SEM
  6. LEFLUNOMIDE [Concomitant]
     Dosage: 20 MG, QD

REACTIONS (3)
  - ORAL PAIN [None]
  - OSTEONECROSIS OF JAW [None]
  - HYPOPHAGIA [None]
